FAERS Safety Report 13739114 (Version 1)
Quarter: 2017Q3

REPORT INFORMATION
  Report Type: Spontaneous
  Country: US (occurrence: US)
  Receive Date: 20170710
  Receipt Date: 20170710
  Transmission Date: 20171127
  Serious: Yes (Other)
  Sender: FDA-Public Use
  Company Number: US-SAOL THERAPEUTICS-2017SAO00566

PATIENT
  Sex: Female
  Weight: 25 kg

DRUGS (7)
  1. LIORESAL [Suspect]
     Active Substance: BACLOFEN
     Dosage: 70 ?G, \DAY
     Route: 037
  2. LIORESAL [Suspect]
     Active Substance: BACLOFEN
     Indication: CEREBRAL PALSY
     Dosage: 500 ?G, \DAY
     Route: 037
  3. CLONAZEPAM. [Concomitant]
     Active Substance: CLONAZEPAM
  4. OXCARBAZEPINE. [Concomitant]
     Active Substance: OXCARBAZEPINE
  5. LAMOTRIGINE. [Concomitant]
     Active Substance: LAMOTRIGINE
  6. LIORESAL [Suspect]
     Active Substance: BACLOFEN
     Indication: MUSCLE SPASTICITY
     Dosage: 65 ?G, \DAY
     Route: 037
     Dates: start: 20150922
  7. LIORESAL [Suspect]
     Active Substance: BACLOFEN
     Dosage: 50 ?G, \DAY
     Route: 037

REACTIONS (7)
  - Irritability [Unknown]
  - Drug withdrawal syndrome [Unknown]
  - Device kink [Recovered/Resolved]
  - Therapeutic response decreased [Recovered/Resolved]
  - Implant site reaction [Recovered/Resolved]
  - Hypertonia [Unknown]
  - Arthropathy [Unknown]

NARRATIVE: CASE EVENT DATE: 2016
